FAERS Safety Report 4403761-0 (Version None)
Quarter: 2004Q3

REPORT INFORMATION
  Report Type: 
  Country: None (occurrence: None)
  Receive Date: 20040719
  Receipt Date: 20040712
  Transmission Date: 20050211
  Serious: Yes (Hospitalization)
  Sender: FDA-Public Use
  Company Number: 2004046879

PATIENT
  Age: 12 Year
  Sex: Female
  Weight: 52.1637 kg

DRUGS (1)
  1. BENADRYL [Suspect]
     Indication: SNEEZING
     Dosage: TWO KAPSEALS ONCE, ORAL
     Route: 048
     Dates: start: 20040711, end: 20040711

REACTIONS (1)
  - THROAT TIGHTNESS [None]
